FAERS Safety Report 9888466 (Version 1)
Quarter: 2014Q1

REPORT INFORMATION
  Report Type: Spontaneous
  Country: FR (occurrence: FR)
  Receive Date: 20140211
  Receipt Date: 20140211
  Transmission Date: 20141002
  Serious: Yes (Other)
  Sender: FDA-Public Use
  Company Number: FR-JNJFOC-20140202350

PATIENT
  Age: 30 Year
  Sex: Female

DRUGS (3)
  1. INFLIXIMAB, RECOMBINANT [Suspect]
     Indication: CROHN^S DISEASE
     Dosage: AT WEEKS 0, 2 AND 6
     Route: 042
  2. HYDROCORTISONE [Concomitant]
     Indication: PREMEDICATION
     Route: 065
  3. METHOTREXATE [Concomitant]
     Route: 065

REACTIONS (2)
  - Acne [Recovering/Resolving]
  - Infusion related reaction [Recovering/Resolving]
